FAERS Safety Report 4939838-0 (Version None)
Quarter: 2006Q1

REPORT INFORMATION
  Report Type: 
  Country: None (occurrence: None)
  Receive Date: 20060310
  Receipt Date: 20051228
  Transmission Date: 20060701
  Serious: Yes (Death)
  Sender: FDA-Public Use
  Company Number: US-SANOFI-SYNTHELABO-F01200502887

PATIENT
  Sex: Male

DRUGS (9)
  1. OXALIPLATIN [Suspect]
     Indication: COLORECTAL CANCER METASTATIC
     Dosage: UNKNOWN
  2. FLUOROURACIL [Suspect]
     Dosage: UNKNOWN
  3. FOLINIC ACID [Suspect]
     Dosage: UNKNOWN
  4. BEVACIZUMAB [Suspect]
     Dosage: DOSE NOT REPORTED
     Route: 042
     Dates: start: 20050907
  5. AMBIEN [Concomitant]
     Dosage: UNK
     Route: 065
  6. XANAX [Concomitant]
     Dosage: UNK
     Route: 065
  7. TYLENOL (CAPLET) [Concomitant]
     Dosage: UNK
     Route: 065
  8. ASPIRIN [Concomitant]
     Dosage: UNK
     Route: 065
  9. HYDROCODONE [Concomitant]
     Dosage: UNK
     Route: 065

REACTIONS (7)
  - DEATH [None]
  - DECUBITUS ULCER [None]
  - DEHYDRATION [None]
  - LOSS OF CONSCIOUSNESS [None]
  - MENTAL STATUS CHANGES [None]
  - SEPSIS [None]
  - SHOCK [None]
